FAERS Safety Report 9662630 (Version 1)
Quarter: 2013Q4

REPORT INFORMATION
  Report Type: Spontaneous
  Country: US (occurrence: US)
  Receive Date: 20131031
  Receipt Date: 20131031
  Transmission Date: 20140711
  Serious: No
  Sender: FDA-Public Use
  Company Number: US-PURDUE-USA-2011-0074171

PATIENT
  Sex: Male

DRUGS (6)
  1. OXYCONTIN (NDA 22-272) [Suspect]
     Indication: BACK PAIN
     Dosage: 20 MG, Q12H
     Route: 048
     Dates: start: 201102, end: 201105
  2. PERCOCET /00867901/ [Suspect]
     Indication: BREAKTHROUGH PAIN
     Dosage: 20 MG, Q4H
     Route: 048
     Dates: start: 201102, end: 201105
  3. CELEBREX [Suspect]
     Indication: BACK PAIN
     Dosage: 200 MG, BID
     Dates: start: 201102, end: 201105
  4. CELEBREX [Suspect]
     Dosage: 200 MG, PRN
     Route: 048
     Dates: start: 201105
  5. FENTANYL [Suspect]
     Indication: PAIN
     Dosage: 50 MG, Q3D
     Route: 062
     Dates: start: 201102
  6. LORTAB /00607101/ [Suspect]
     Indication: PRODUCT USED FOR UNKNOWN INDICATION
     Dosage: 7.5 MG, PRN
     Route: 048
     Dates: start: 201105

REACTIONS (2)
  - Gastrooesophageal reflux disease [Recovered/Resolved]
  - Chest pain [Unknown]
